FAERS Safety Report 24289198 (Version 2)
Quarter: 2024Q3

REPORT INFORMATION
  Report Type: Spontaneous
  Country: HU (occurrence: HU)
  Receive Date: 20240906
  Receipt Date: 20240913
  Transmission Date: 20241016
  Serious: Yes (Life-Threatening, Hospitalization, Other)
  Sender: JUBILANT
  Company Number: None

PATIENT
  Age: 17 Year
  Sex: Female

DRUGS (3)
  1. LAMOTRIGINE [Suspect]
     Active Substance: LAMOTRIGINE
     Indication: Juvenile myoclonic epilepsy
     Dosage: 50 MG, 2 TIMES PER DAY
     Route: 065
  2. LAMOTRIGINE [Suspect]
     Active Substance: LAMOTRIGINE
     Dosage: 12.5 MG, 2 TIMES PER DAY (HALVE THE MEDICATION DOSE  2 X 12.5 MG)
     Route: 065
  3. LAMOTRIGINE [Suspect]
     Active Substance: LAMOTRIGINE
     Dosage: UNK,  UNK (GRADUALLY INCREASING DOSE)
     Route: 065

REACTIONS (23)
  - Madarosis [Recovered/Resolved]
  - Necrosis [Recovered/Resolved]
  - Hypothermia [Recovered/Resolved]
  - Hypotension [Recovered/Resolved]
  - Acute kidney injury [Recovered/Resolved]
  - Epidermolysis bullosa [Recovered/Resolved]
  - Supraventricular extrasystoles [Recovered/Resolved]
  - Acute respiratory distress syndrome [Recovered/Resolved]
  - Hypernatraemia [Recovered/Resolved]
  - Dry eye [Recovered/Resolved]
  - Leukopenia [Recovered/Resolved]
  - Mucosal ulceration [Recovered/Resolved]
  - Conjunctival haemorrhage [Recovered/Resolved]
  - Toxic epidermal necrolysis [Recovered/Resolved]
  - Bradycardia [Recovered/Resolved]
  - Electrolyte imbalance [Recovered/Resolved]
  - Conjunctivitis [Recovered/Resolved]
  - Anaemia [Recovered/Resolved]
  - Detachment of retinal pigment epithelium [Recovered/Resolved]
  - Corneal epithelium defect [Recovered/Resolved]
  - Trichiasis [Recovered/Resolved]
  - Sepsis [Recovered/Resolved]
  - Renal tubular necrosis [Recovered/Resolved]
